FAERS Safety Report 11077860 (Version 3)
Quarter: 2015Q3

REPORT INFORMATION
  Report Type: Spontaneous
  Country: US (occurrence: US)
  Receive Date: 20150430
  Receipt Date: 20150702
  Transmission Date: 20151125
  Serious: No
  Sender: FDA-Public Use
  Company Number: US-009507513-1504USA023352

PATIENT
  Sex: Female

DRUGS (1)
  1. NOXAFIL [Suspect]
     Active Substance: POSACONAZOLE
     Indication: LIVER FUNCTION TEST ABNORMAL
     Dosage: 300 MG, ONCE DAILY
     Route: 048

REACTIONS (2)
  - Therapy cessation [Unknown]
  - Drug prescribing error [Unknown]
